FAERS Safety Report 11702009 (Version 2)
Quarter: 2015Q4

REPORT INFORMATION
  Report Type: Spontaneous
  Country: JP (occurrence: JP)
  Receive Date: 20151105
  Receipt Date: 20151209
  Transmission Date: 20160304
  Serious: Yes (Death, Hospitalization, Other)
  Sender: FDA-Public Use
  Company Number: JP-BRISTOL-MYERS SQUIBB COMPANY-BMS-2015-074190

PATIENT
  Age: 65 Year
  Sex: Male

DRUGS (1)
  1. CETUXIMAB [Suspect]
     Active Substance: CETUXIMAB
     Indication: GINGIVAL CANCER
     Dosage: UNK
     Route: 041
     Dates: start: 201405, end: 201407

REACTIONS (4)
  - Muscle abscess [Not Recovered/Not Resolved]
  - Staphylococcal sepsis [Not Recovered/Not Resolved]
  - Spondylitis [Not Recovered/Not Resolved]
  - Renal impairment [Fatal]

NARRATIVE: CASE EVENT DATE: 201408
